FAERS Safety Report 9147120 (Version 1)
Quarter: 2013Q1

REPORT INFORMATION
  Report Type: Spontaneous
  Country: HU (occurrence: HU)
  Receive Date: 20130307
  Receipt Date: 20130307
  Transmission Date: 20140127
  Serious: Yes (Other)
  Sender: FDA-Public Use
  Company Number: HU-ROCHE-1199279

PATIENT
  Age: 52 Year
  Sex: Female
  Weight: 87 kg

DRUGS (7)
  1. XOLAIR [Suspect]
     Indication: ASTHMA
     Route: 058
     Dates: start: 20120823
  2. SERETIDE DISKUS [Concomitant]
     Route: 065
     Dates: start: 20121212
  3. VENTOLIN [Concomitant]
     Route: 065
     Dates: start: 20100906
  4. NASONEX [Concomitant]
     Route: 065
     Dates: start: 20130220
  5. CETIRIZINE HYDROCHLORIDE [Concomitant]
     Route: 065
     Dates: start: 20100906
  6. MEDROL [Concomitant]
  7. CO-RENITEC [Concomitant]
     Route: 065

REACTIONS (3)
  - Eosinophilia [Unknown]
  - Pain in extremity [Unknown]
  - Rhinitis allergic [Unknown]
